FAERS Safety Report 13689580 (Version 3)
Quarter: 2017Q4

REPORT INFORMATION
  Report Type: Spontaneous
  Country: JP (occurrence: JP)
  Receive Date: 20170626
  Receipt Date: 20171103
  Transmission Date: 20180320
  Serious: Yes (Disabling, Other)
  Sender: FDA-Public Use
  Company Number: JP-CLINIGEN GROUP PLC/ CLINIGEN HEALTHCARE LTD-JP-CLGN-17-00209

PATIENT
  Age: 11 Month
  Sex: Male
  Weight: 8 kg

DRUGS (2)
  1. GANCICLOVIR. [Concomitant]
     Active Substance: GANCICLOVIR
     Indication: CYTOMEGALOVIRUS VIRAEMIA
  2. FOSCARNET SODIUM. [Suspect]
     Active Substance: FOSCARNET SODIUM
     Indication: CYTOMEGALOVIRUS VIRAEMIA
     Route: 041

REACTIONS (4)
  - Condition aggravated [Recovered/Resolved]
  - Off label use [Unknown]
  - Cytomegalovirus chorioretinitis [Recovered/Resolved with Sequelae]
  - Cytomegalovirus viraemia [Recovered/Resolved]
